FAERS Safety Report 15323290 (Version 5)
Quarter: 2019Q2

REPORT INFORMATION
  Report Type: Report from Study
  Country: US (occurrence: US)
  Receive Date: 20180827
  Receipt Date: 20190628
  Transmission Date: 20190711
  Serious: Yes (Hospitalization, Other)
  Sender: FDA-Public Use
  Company Number: US-ACTELION-A-NJ2018-177675

PATIENT
  Age: 71 Year
  Sex: Female

DRUGS (1)
  1. OPSUMIT [Suspect]
     Active Substance: MACITENTAN
     Indication: PULMONARY ARTERIAL HYPERTENSION
     Dosage: 10 MG, QD
     Route: 048
     Dates: start: 20160308

REACTIONS (7)
  - Spinal cord operation [Unknown]
  - Cerebrovascular accident [Unknown]
  - Dysphagia [Unknown]
  - Fall [Unknown]
  - Wound [Unknown]
  - Pain [Unknown]
  - Amnesia [Unknown]

NARRATIVE: CASE EVENT DATE: 20180702
